FAERS Safety Report 7079400-X (Version None)
Quarter: 2010Q4

REPORT INFORMATION
  Report Type: 
  Country: None (occurrence: None)
  Receive Date: 20101022
  Receipt Date: 20101007
  Transmission Date: 20110411
  Serious: Yes (Death)
  Sender: FDA-Public Use
  Company Number: 011477

PATIENT

DRUGS (11)
  1. BUSULFEX [Suspect]
     Indication: STEM CELL TRANSPLANT
     Dosage: Q6HR, INTRAVENOUS
     Route: 042
  2. HYDROXYUREA [Concomitant]
  3. AZATHIOPRINE [Concomitant]
  4. FLUDARABINE PHOSPHATE [Concomitant]
  5. CYCLOPHOSPHAMIDE [Concomitant]
  6. THIOTEPA (THIPTEPA) [Concomitant]
  7. ATG (ANTILYMPHOCYTE IMMUNOGLOBIN (HORSE)) [Concomitant]
  8. CYCLOSPORINE [Concomitant]
  9. METHYLPREDNISOLONE [Concomitant]
  10. CLONAZEPAM [Concomitant]
  11. DEFIBROTIDE (DEFIBROTIDE) [Concomitant]

REACTIONS (1)
  - TRANSPLANT FAILURE [None]
